FAERS Safety Report 8216469-0 (Version None)
Quarter: 2012Q1

REPORT INFORMATION
  Report Type: 
  Country: None (occurrence: None)
  Receive Date: 20120316
  Receipt Date: 20120305
  Transmission Date: 20120608
  Serious: Yes (Hospitalization)
  Sender: FDA-Public Use
  Company Number: US-MYLANLABS-2012S1000984

PATIENT
  Age: 63 Year
  Sex: Female

DRUGS (11)
  1. DIGOXIN [Suspect]
     Indication: CARDIAC FAILURE
     Route: 048
     Dates: start: 20070601, end: 20080222
  2. ASPIRIN [Concomitant]
     Route: 048
  3. LEXAPRO [Concomitant]
     Route: 048
     Dates: end: 20100101
  4. SIMVASTATIN [Concomitant]
     Route: 048
  5. SPIRONOLACTONE [Concomitant]
     Route: 048
  6. COREG [Concomitant]
     Route: 048
  7. OMEPRAZOLE [Concomitant]
     Route: 048
  8. FUROSEMIDE [Concomitant]
     Route: 048
  9. FERROUS SULFATE TAB [Concomitant]
     Route: 048
  10. LISINOPRIL [Concomitant]
     Route: 048
  11. WARFARIN SODIUM [Concomitant]
     Dosage: TAKE 5MG FOR 2 DAYS THEN TAKEN 2.5MG FOR 3 DAYS
     Route: 048

REACTIONS (6)
  - INTERNATIONAL NORMALISED RATIO INCREASED [None]
  - OVERDOSE [None]
  - CONFUSIONAL STATE [None]
  - MUSCULAR WEAKNESS [None]
  - RENAL FAILURE ACUTE [None]
  - FALL [None]
